FAERS Safety Report 23703774 (Version 1)
Quarter: 2024Q2

REPORT INFORMATION
  Report Type: Spontaneous
  Country: JP (occurrence: JP)
  Receive Date: 20240403
  Receipt Date: 20240403
  Transmission Date: 20240716
  Serious: Yes (Other)
  Sender: FDA-Public Use
  Company Number: JP-CARA THERAPEUTICS, INC.-2024-00183-JP

PATIENT
  Age: 9 Decade
  Sex: Female

DRUGS (1)
  1. KORSUVA [Suspect]
     Active Substance: DIFELIKEFALIN ACETATE
     Indication: Pruritus
     Dosage: 25 ?G/ (25 ?G/   )
     Route: 042
     Dates: start: 202403

REACTIONS (1)
  - Blood pressure decreased [Unknown]
